FAERS Safety Report 8050910-1 (Version None)
Quarter: 2012Q1

REPORT INFORMATION
  Report Type: 
  Country: None (occurrence: None)
  Receive Date: 20120117
  Receipt Date: 20120109
  Transmission Date: 20120608
  Serious: Yes (Hospitalization, Other)
  Sender: FDA-Public Use
  Company Number: PHFR2011GB06215

PATIENT
  Age: 50 Year
  Sex: Male

DRUGS (2)
  1. ESCITALOPRAM [Suspect]
     Indication: DEPRESSION
     Dosage: 20 MG, PER DAY
     Route: 048
  2. RITALIN [Suspect]
     Dosage: UNK UKN, UNK
     Route: 048

REACTIONS (2)
  - ADRENAL DISORDER [None]
  - ADRENOMEGALY [None]
